FAERS Safety Report 17841531 (Version 1)
Quarter: 2020Q2

REPORT INFORMATION
  Report Type: Spontaneous
  Country: CN (occurrence: CN)
  Receive Date: 20200529
  Receipt Date: 20200529
  Transmission Date: 20200714
  Serious: Yes (Hospitalization)
  Sender: FDA-Public Use
  Company Number: CN-BAXTER-2020BAX011029

PATIENT
  Age: 76 Year
  Sex: Female
  Weight: 44.5 kg

DRUGS (3)
  1. 0.9% SODIUM CHLORIDE INJECTION [Suspect]
     Active Substance: SODIUM CHLORIDE
     Indication: MEDICATION DILUTION
     Dosage: ENDOXAN 810 MG + 0.9% SODIUM CHLORIDE 250 ML
     Route: 041
     Dates: start: 20200513, end: 20200513
  2. VINDESINE SULFATE [Suspect]
     Active Substance: VINDESINE SULFATE
     Indication: DIFFUSE LARGE B-CELL LYMPHOMA
     Route: 040
     Dates: start: 20200513, end: 20200513
  3. ENDOXAN [Suspect]
     Active Substance: CYCLOPHOSPHAMIDE
     Indication: DIFFUSE LARGE B-CELL LYMPHOMA
     Dosage: ENDOXAN 810 MG + 0.9% SODIUM CHLORIDE 250 ML
     Route: 041
     Dates: start: 20200513, end: 20200513

REACTIONS (2)
  - White blood cell count decreased [Unknown]
  - Neutrophil count decreased [Unknown]

NARRATIVE: CASE EVENT DATE: 20200522
